FAERS Safety Report 8355955-X (Version None)
Quarter: 2012Q2

REPORT INFORMATION
  Report Type: 
  Country: None (occurrence: None)
  Receive Date: 20120514
  Receipt Date: 20120511
  Transmission Date: 20120825
  Serious: Yes (Other)
  Sender: FDA-Public Use
  Company Number: US-BAYER-2011-103280

PATIENT
  Age: 36 Year
  Sex: Male

DRUGS (4)
  1. VIREAD [Concomitant]
     Dosage: DAILY DOSE 300 MG
  2. NEXAVAR [Suspect]
     Indication: HEPATIC NEOPLASM MALIGNANT
     Dosage: 400 MG, BID
     Route: 048
     Dates: start: 20111005, end: 20111015
  3. MIRTAZAPINE [Concomitant]
     Dosage: DAILY DOSE 15 MG
  4. OMEPRAZOLE [Concomitant]
     Dosage: 20 MG, BID

REACTIONS (1)
  - STEVENS-JOHNSON SYNDROME [None]
